FAERS Safety Report 25994068 (Version 1)
Quarter: 2025Q4

REPORT INFORMATION
  Report Type: Report from Study
  Country: CA (occurrence: CA)
  Receive Date: 20251104
  Receipt Date: 20251104
  Transmission Date: 20260118
  Serious: Yes (Hospitalization, Other)
  Sender: ABBVIE
  Company Number: CA-ABBVIE-6527206

PATIENT
  Sex: Female

DRUGS (1)
  1. SKYRIZI [Suspect]
     Active Substance: RISANKIZUMAB-RZAA
     Indication: Psoriasis
     Dosage: INJECT THE CONTENTS OF 1 PEN (=150 MG) SUBCUTANEOU SLY EVERY 10 ?WEEKS
     Route: 058

REACTIONS (1)
  - Cholecystitis infective [Recovering/Resolving]
